FAERS Safety Report 9229068 (Version 1)
Quarter: 2013Q2

REPORT INFORMATION
  Report Type: Spontaneous
  Country: SE (occurrence: SE)
  Receive Date: 20130412
  Receipt Date: 20130412
  Transmission Date: 20140414
  Serious: Yes (Life-Threatening, Other)
  Sender: FDA-Public Use
  Company Number: SE-ASTRAZENECA-2013SE12151

PATIENT
  Age: 53 Year
  Sex: Male

DRUGS (2)
  1. BRILIQUE [Suspect]
     Indication: ACUTE MYOCARDIAL INFARCTION
     Dosage: LOADING DOSE 90 MG X2
     Route: 048
     Dates: start: 20121008
  2. BRILIQUE [Suspect]
     Indication: HYPERTONIA
     Dosage: LOADING DOSE 90 MG X2
     Route: 048
     Dates: start: 20121008

REACTIONS (4)
  - Multi-organ failure [Unknown]
  - Platelet aggregation inhibition [Unknown]
  - Post procedural haemorrhage [Recovered/Resolved]
  - Haematoma [Recovered/Resolved]
